FAERS Safety Report 8954831 (Version 1)
Quarter: 2012Q4

REPORT INFORMATION
  Report Type: 
  Country: FR (occurrence: FR)
  Receive Date: 20121207
  Receipt Date: 20121207
  Transmission Date: 20130627
  Serious: Yes (Hospitalization)
  Sender: FDA-Public Use
  Company Number: FR-PFIZER INC-2012305722

PATIENT
  Age: 21 Year
  Sex: Male

DRUGS (2)
  1. ADVIL [Suspect]
     Indication: HEADACHE
     Dosage: UNK
     Dates: start: 2012, end: 20120801
  2. PARIET [Concomitant]
     Indication: GASTRIC ULCER PROPHYLAXIS

REACTIONS (1)
  - Tubulointerstitial nephritis [Recovered/Resolved]
